FAERS Safety Report 8226678-2 (Version None)
Quarter: 2012Q1

REPORT INFORMATION
  Report Type: 
  Country: None (occurrence: None)
  Receive Date: 20120322
  Receipt Date: 20120319
  Transmission Date: 20120608
  Serious: Yes (Other)
  Sender: FDA-Public Use
  Company Number: US-BAYER-2012-027213

PATIENT
  Age: 50 Year
  Sex: Male

DRUGS (8)
  1. INSULIN [Concomitant]
     Dosage: UNK UNK, QID
  2. INTERFERON BETA-1B [Suspect]
     Dosage: 4 MIU, QOD
     Route: 058
  3. INTERFERON BETA-1B [Suspect]
     Indication: RELAPSING-REMITTING MULTIPLE SCLEROSIS
     Dosage: UNK
     Dates: start: 20120305
  4. PROZAC [Concomitant]
  5. CLONOPIN [Concomitant]
  6. VICODIN [Concomitant]
  7. TOPAMAX [Concomitant]
  8. SEROQUEL [Concomitant]

REACTIONS (3)
  - HEADACHE [None]
  - DYSGEUSIA [None]
  - BLOOD GLUCOSE INCREASED [None]
